FAERS Safety Report 15049804 (Version 1)
Quarter: 2018Q2

REPORT INFORMATION
  Report Type: Spontaneous
  Country: US (occurrence: US)
  Receive Date: 20180601
  Receipt Date: 20180601
  Transmission Date: 20180711
  Serious: Yes (Disabling)
  Sender: FDA-Public Use
  Company Number: None

PATIENT
  Age: 75 Year
  Sex: Female
  Weight: 54.43 kg

DRUGS (8)
  1. XALATAN [Concomitant]
     Active Substance: LATANOPROST
  2. LEVOTHYROXINE. [Concomitant]
     Active Substance: LEVOTHYROXINE
  3. ACIDOPHYLUS (LIQUID) [Concomitant]
  4. BABY ASPIRIN [Concomitant]
     Active Substance: ASPIRIN
  5. PILOCARPINE HYDROCHLORIDE OPHTHALMIC SOLUTI [Suspect]
     Active Substance: PILOCARPINE HYDROCHLORIDE
     Indication: NORMAL TENSION GLAUCOMA
     Dosage: ?          QUANTITY:1 GTT DROP(S);?
     Route: 048
     Dates: start: 20171001, end: 201804
  6. HOMEOPATHIC BOIRON BLUE TUBES [Concomitant]
  7. VIT C CRYSTALS [Concomitant]
  8. COD LIVER OIL (LIQUID) [Concomitant]

REACTIONS (4)
  - Muscle spasms [None]
  - Instillation site erythema [None]
  - Instillation site irritation [None]
  - Dyspnoea [None]

NARRATIVE: CASE EVENT DATE: 201710
